FAERS Safety Report 11424831 (Version 1)
Quarter: 2015Q3

REPORT INFORMATION
  Report Type: Spontaneous
  Country: US (occurrence: US)
  Receive Date: 20150821
  Receipt Date: 20150821
  Transmission Date: 20151125
  Serious: No
  Sender: FDA-Public Use
  Company Number: US-ELI_LILLY_AND_COMPANY-US201211008756

PATIENT
  Sex: Female

DRUGS (3)
  1. HUMULIN N [Suspect]
     Active Substance: INSULIN HUMAN
     Dosage: 10 U, QD
     Dates: end: 201210
  2. HUMULIN N [Suspect]
     Active Substance: INSULIN HUMAN
     Dosage: 21 U, UNKNOWN
  3. HUMULIN N [Suspect]
     Active Substance: INSULIN HUMAN
     Indication: DIABETES MELLITUS
     Dosage: 7 U, BID
     Dates: start: 201107

REACTIONS (3)
  - Presyncope [Recovering/Resolving]
  - Weight decreased [Unknown]
  - Intentional product misuse [Recovered/Resolved]
